FAERS Safety Report 9001838 (Version 2)
Quarter: 2014Q3

REPORT INFORMATION
  Report Type: Report from Study
  Country: US (occurrence: US)
  Receive Date: 20130107
  Receipt Date: 20140904
  Transmission Date: 20150326
  Serious: Yes (Hospitalization)
  Sender: FDA-Public Use
  Company Number: US-ROCHE-1176638

PATIENT
  Age: 52 Year
  Sex: Female

DRUGS (2)
  1. RITUXAN [Suspect]
     Active Substance: RITUXIMAB
     Indication: SYSTEMIC LUPUS ERYTHEMATOSUS
     Route: 042
     Dates: start: 201101
  2. RITUXAN [Suspect]
     Active Substance: RITUXIMAB
     Route: 042
     Dates: start: 201209

REACTIONS (11)
  - Lymphadenopathy [Unknown]
  - Diarrhoea [Unknown]
  - Autoimmune disorder [Not Recovered/Not Resolved]
  - Mouth ulceration [Unknown]
  - Abdominal pain [Unknown]
  - Pancreatitis [Unknown]
  - Protein urine present [Not Recovered/Not Resolved]
  - Nausea [Not Recovered/Not Resolved]
  - Blood immunoglobulin M decreased [Not Recovered/Not Resolved]
  - Feeling abnormal [Not Recovered/Not Resolved]
  - Medication error [Unknown]

NARRATIVE: CASE EVENT DATE: 201208
